FAERS Safety Report 21424001 (Version 1)
Quarter: 2022Q4

REPORT INFORMATION
  Report Type: Spontaneous
  Country: US (occurrence: US)
  Receive Date: 20221007
  Receipt Date: 20221007
  Transmission Date: 20230113
  Serious: Yes (Hospitalization)
  Sender: FDA-Public Use
  Company Number: US-MYLANLABS-2022M1110887

PATIENT
  Age: 52 Year
  Sex: Male
  Weight: 107.7 kg

DRUGS (1)
  1. VANCOMYCIN HYDROCHLORIDE [Suspect]
     Active Substance: VANCOMYCIN HYDROCHLORIDE
     Indication: Cellulitis
     Dosage: 1 GRAM, ONCE (AT A RATE OF 100ML/HR )
     Route: 042
     Dates: start: 20220921, end: 20220921

REACTIONS (7)
  - Throat tightness [Not Recovered/Not Resolved]
  - Hyperhidrosis [Not Recovered/Not Resolved]
  - Blood pressure diastolic decreased [Not Recovered/Not Resolved]
  - Heart rate increased [Not Recovered/Not Resolved]
  - Oxygen saturation decreased [Not Recovered/Not Resolved]
  - Dyspnoea [Not Recovered/Not Resolved]
  - Drug hypersensitivity [Unknown]

NARRATIVE: CASE EVENT DATE: 20220921
